FAERS Safety Report 9282668 (Version 1)
Quarter: 2013Q2

REPORT INFORMATION
  Report Type: Spontaneous
  Country: US (occurrence: None)
  Receive Date: 20130509
  Receipt Date: 20130509
  Transmission Date: 20140414
  Serious: Yes (Hospitalization, Other)
  Sender: FDA-Public Use
  Company Number: None

PATIENT
  Age: 60 Year
  Sex: Female
  Weight: 89.5 kg

DRUGS (8)
  1. RIVAROXABAN [Suspect]
     Indication: THROMBOSIS PROPHYLAXIS
     Dosage: 10 MG (QUANTITY DAILY PO 11)
     Dates: start: 20130417, end: 20130421
  2. RIVAROXABAN [Suspect]
     Indication: KNEE OPERATION
     Dosage: 10 MG (QUANTITY DAILY PO 11)
     Dates: start: 20130417, end: 20130421
  3. RIVAROXABAN [Suspect]
     Indication: POSTOPERATIVE CARE
     Dosage: 10 MG (QUANTITY DAILY PO 11)
     Dates: start: 20130417, end: 20130421
  4. METFORMIN ER 500MG [Concomitant]
  5. FERROUS SULFATE 325MG [Concomitant]
  6. DOCUSATE SODIUM (COLACE) 100MG [Concomitant]
  7. CHROMIUM PICOLINATE 500MCG [Concomitant]
  8. ONDANSETRON (ZOFRAN) 4MG [Concomitant]

REACTIONS (4)
  - Dyspnoea [None]
  - Chest discomfort [None]
  - Malaise [None]
  - Cough [None]
